FAERS Safety Report 26126697 (Version 3)
Quarter: 2025Q4

REPORT INFORMATION
  Report Type: Spontaneous
  Country: JP (occurrence: JP)
  Receive Date: 20251205
  Receipt Date: 20251216
  Transmission Date: 20260118
  Serious: Yes (Hospitalization, Other)
  Sender: MERCK SHARP & DOHME LLC
  Company Number: JP-009507513-2340618

PATIENT
  Age: 72 Year
  Sex: Male
  Weight: 58.7 kg

DRUGS (9)
  1. KEYTRUDA [Suspect]
     Active Substance: PEMBROLIZUMAB
     Indication: Bile duct cancer
     Route: 041
     Dates: start: 20250829, end: 20250829
  2. CYTARABINE [Suspect]
     Active Substance: CYTARABINE
     Indication: Bile duct cancer
     Dosage: 1-DAY DOSAGE: 40 MG X 2 TIMES
     Route: 041
     Dates: start: 20250829, end: 20250905
  3. CYCLOPHOSPHAMIDE [Suspect]
     Active Substance: CYCLOPHOSPHAMIDE
     Indication: Bile duct cancer
     Dosage: 1-DAY DOSAGE: 1600 MG X 2 TIMES
     Route: 041
     Dates: start: 20250829, end: 20250905
  4. Novamin [Concomitant]
     Route: 030
     Dates: start: 20250901, end: 20251006
  5. ELNEOPA-NF No.1 [Concomitant]
     Dates: start: 20250905, end: 20250910
  6. PRASUGREL HYDROCHLORIDE [Concomitant]
     Active Substance: PRASUGREL HYDROCHLORIDE
     Dates: start: 20250906, end: 20250909
  7. EDOXABAN TOSYLATE [Concomitant]
     Active Substance: EDOXABAN TOSYLATE
     Dates: start: 20250906, end: 20250909
  8. GEMCITABINE [Suspect]
     Active Substance: GEMCITABINE
     Indication: Bile duct cancer
  9. CISPLATIN [Suspect]
     Active Substance: CISPLATIN
     Indication: Bile duct cancer

REACTIONS (8)
  - Myelosuppression [Unknown]
  - Cytokine release syndrome [Recovered/Resolved]
  - Nausea [Unknown]
  - Haemophagocytic lymphohistiocytosis [Recovered/Resolved]
  - Femoral neck fracture [Unknown]
  - Incorrect dose administered [Unknown]
  - Fall [Unknown]
  - Febrile neutropenia [Unknown]

NARRATIVE: CASE EVENT DATE: 20250829
